FAERS Safety Report 5420921-0 (Version None)
Quarter: 2007Q3

REPORT INFORMATION
  Report Type: 
  Country: None (occurrence: None)
  Receive Date: 20070817
  Receipt Date: 20070817
  Transmission Date: 20080115
  Serious: Yes (Hospitalization)
  Sender: FDA-Public Use
  Company Number: None

PATIENT
  Age: 67 Year
  Sex: Female

DRUGS (6)
  1. THALOMID [Suspect]
     Indication: TRANSITIONAL CELL CANCER OF THE RENAL PELVIS AND URETER
     Dosage: 100 MG QHS 28 DAYS PO
     Route: 048
     Dates: start: 20070625, end: 20070814
  2. XELODA [Suspect]
     Indication: TRANSITIONAL CELL CANCER OF THE RENAL PELVIS AND URETER
     Dosage: 2000 MG QHS 21 DAY PO
     Route: 048
     Dates: start: 20070702, end: 20070814
  3. TEMODAR [Concomitant]
  4. NORVASC [Concomitant]
  5. INDEROL [Concomitant]
  6. RITALIN [Concomitant]

REACTIONS (1)
  - HAEMOGLOBIN DECREASED [None]
